FAERS Safety Report 25089997 (Version 2)
Quarter: 2025Q1

REPORT INFORMATION
  Report Type: Report from Study
  Country: US (occurrence: US)
  Receive Date: 20250318
  Receipt Date: 20250325
  Transmission Date: 20250409
  Serious: No
  Sender: BIOVITRUM
  Company Number: US-BIOVITRUM-2025-US-003641

PATIENT
  Age: 71 Year
  Sex: Female

DRUGS (1)
  1. KINERET [Suspect]
     Active Substance: ANAKINRA
     Indication: Monoclonal gammopathy
     Route: 058
     Dates: start: 20250226

REACTIONS (5)
  - Injection site pain [Unknown]
  - Nasopharyngitis [Not Recovered/Not Resolved]
  - Off label use [Recovered/Resolved]
  - White blood cell count decreased [Unknown]
  - Neutrophil count decreased [Unknown]

NARRATIVE: CASE EVENT DATE: 20250226
